FAERS Safety Report 17780726 (Version 5)
Quarter: 2020Q2

REPORT INFORMATION
  Report Type: Spontaneous
  Country: GB (occurrence: GB)
  Receive Date: 20200513
  Receipt Date: 20200609
  Transmission Date: 20200714
  Serious: Yes (Hospitalization, Other)
  Sender: FDA-Public Use
  Company Number: NVSC2020GB128998

PATIENT
  Age: 90 Year
  Sex: Female

DRUGS (8)
  1. ATORVASTATIN [Interacting]
     Active Substance: ATORVASTATIN
     Dosage: 40 MD QD NIGHTLY (ON DAY 92)
     Route: 065
  2. CLOPIDOGREL [Interacting]
     Active Substance: CLOPIDOGREL BISULFATE
     Indication: TRANSIENT ISCHAEMIC ATTACK
     Dosage: 300 MG, QD
     Route: 065
  3. CLOPIDOGREL [Interacting]
     Active Substance: CLOPIDOGREL BISULFATE
     Dosage: 75 MG, QD (ON DAY 20 TIA)
     Route: 065
  4. NIFEDIPINE. [Interacting]
     Active Substance: NIFEDIPINE
     Indication: HYPERTENSION
     Dosage: 40 MG, QD
     Route: 065
  5. NIFEDIPINE. [Interacting]
     Active Substance: NIFEDIPINE
     Dosage: (LONG-STANDING)
     Route: 065
  6. ATORVASTATIN [Suspect]
     Active Substance: ATORVASTATIN
     Indication: TRANSIENT ISCHAEMIC ATTACK
     Dosage: 160 MG, QD
     Route: 065
  7. ACETYLSALICYLIC ACID [Concomitant]
     Active Substance: ASPIRIN
     Indication: PRODUCT USED FOR UNKNOWN INDICATION
     Dosage: 75 MG, QD
     Route: 065
  8. ACETYLSALICYLIC ACID [Concomitant]
     Active Substance: ASPIRIN
     Dosage: 300 UNK(RECEIVED UPON ONCE AT EMERGENCY DEPARTMENT)
     Route: 065

REACTIONS (9)
  - Musculoskeletal pain [Recovered/Resolved]
  - Drug-induced liver injury [Recovered/Resolved]
  - Blood alkaline phosphatase increased [Recovered/Resolved]
  - Drug interaction [Recovered/Resolved]
  - Hypergammaglobulinaemia [Unknown]
  - Diverticulum intestinal [Unknown]
  - Alanine aminotransferase increased [Recovered/Resolved]
  - Potentiating drug interaction [Unknown]
  - Epistaxis [Recovered/Resolved]
